FAERS Safety Report 11759974 (Version 1)
Quarter: 2015Q4

REPORT INFORMATION
  Report Type: Report from Study
  Country: MX (occurrence: MX)
  Receive Date: 20151120
  Receipt Date: 20151120
  Transmission Date: 20160304
  Serious: Yes (Death, Life-Threatening, Hospitalization, Disabling)
  Sender: FDA-Public Use
  Company Number: MX-009507513-1508MEX003349

PATIENT
  Age: 28 Year
  Sex: Female

DRUGS (1)
  1. PEMBROLIZUMAB. [Suspect]
     Active Substance: PEMBROLIZUMAB
     Indication: MALIGNANT MELANOMA
     Dosage: 2 MG/KG, Q3W (110 MG) (FREQUENCY AND TOTAL DAILY DOSE: 1 DOSE)
     Route: 042
     Dates: start: 20150630, end: 20150630

REACTIONS (5)
  - Nephritis [Recovering/Resolving]
  - Hypophysitis [Recovering/Resolving]
  - Hepatitis [Recovering/Resolving]
  - Malignant neoplasm progression [Fatal]
  - Pneumonitis [Recovering/Resolving]

NARRATIVE: CASE EVENT DATE: 20150717
